FAERS Safety Report 26008938 (Version 1)
Quarter: 2025Q4

REPORT INFORMATION
  Report Type: Spontaneous
  Country: CA (occurrence: CA)
  Receive Date: 20251106
  Receipt Date: 20251106
  Transmission Date: 20260118
  Serious: Yes (Hospitalization)
  Sender: ACCORD
  Company Number: None

PATIENT
  Age: 20 Month
  Sex: Female
  Weight: 10 kg

DRUGS (14)
  1. CARBOPLATIN [Suspect]
     Active Substance: CARBOPLATIN
     Indication: Nephroblastoma
     Dosage: SOLUTION INTRAVENOUS, CYCLICAL
  2. CYCLOPHOSPHAMIDE [Suspect]
     Active Substance: CYCLOPHOSPHAMIDE
     Indication: Nephroblastoma
     Dosage: CYCLICAL
  3. ETOPOSIDE [Suspect]
     Active Substance: ETOPOSIDE
     Indication: Nephroblastoma
     Dosage: CYCLICAL
  4. ACETAMINOPHEN [Concomitant]
     Active Substance: ACETAMINOPHEN
  5. CYPROHEPTADINE HYDROCHLORIDE [Concomitant]
     Active Substance: CYPROHEPTADINE HYDROCHLORIDE
     Dosage: TABLET USP
  6. DEXAMETHASONE [Concomitant]
     Active Substance: DEXAMETHASONE
     Route: 065
  7. DIMENHYDRINATE [Concomitant]
     Active Substance: DIMENHYDRINATE
  8. EMEND [Concomitant]
     Active Substance: APREPITANT
  9. FILGRASTIM [Concomitant]
     Active Substance: FILGRASTIM
  10. GABAPENTIN [Concomitant]
     Active Substance: GABAPENTIN
  11. LANSOPRAZOLE [Concomitant]
     Active Substance: LANSOPRAZOLE
     Dosage: DELAYED RELEASE
  12. LORAZEPAM [Concomitant]
     Active Substance: LORAZEPAM
     Route: 065
  13. MORPHINE [Concomitant]
     Active Substance: MORPHINE
  14. ONDANSETRON [Concomitant]
     Active Substance: ONDANSETRON

REACTIONS (2)
  - Aplastic anaemia [Recovering/Resolving]
  - Febrile neutropenia [Recovering/Resolving]
